FAERS Safety Report 17843617 (Version 1)
Quarter: 2020Q2

REPORT INFORMATION
  Report Type: Spontaneous
  Country: US (occurrence: US)
  Receive Date: 20200531
  Receipt Date: 20200531
  Transmission Date: 20200714
  Serious: No
  Sender: FDA-Public Use
  Company Number: US-VISTAPHARM, INC.-VER202004-000799

PATIENT
  Age: 73 Year
  Sex: Female
  Weight: 62.14 kg

DRUGS (1)
  1. NYSTATIN ORAL  SUSPENSION, USP  100,000 UNITS PER ML CONTAINS ALCOHOL [Suspect]
     Active Substance: NYSTATIN
     Indication: ORAL CANDIDIASIS
     Dosage: 100,00 IU/ML, 4 TIMES A DAY
     Route: 048
     Dates: start: 20200408, end: 20200409

REACTIONS (3)
  - Stomatitis [Recovered/Resolved]
  - Throat irritation [Unknown]
  - Glossodynia [Unknown]

NARRATIVE: CASE EVENT DATE: 20200409
